FAERS Safety Report 10012686 (Version 2)
Quarter: 2014Q2

REPORT INFORMATION
  Report Type: Spontaneous
  Country: US (occurrence: US)
  Receive Date: 20140314
  Receipt Date: 20140410
  Transmission Date: 20141212
  Serious: Yes (Other)
  Sender: FDA-Public Use
  Company Number: 2014SP000748

PATIENT
  Age: 67 Year
  Sex: Male
  Weight: 83 kg

DRUGS (7)
  1. LUNESTA [Suspect]
     Indication: INSOMNIA
     Route: 048
     Dates: start: 20140217, end: 20140220
  2. LUNESTA [Suspect]
     Indication: INSOMNIA
     Route: 048
     Dates: start: 20140212, end: 20140216
  3. TRAZODONE [Suspect]
     Indication: INSOMNIA
     Route: 048
     Dates: start: 20140221
  4. FISH OIL [Concomitant]
     Route: 048
  5. LISINOPRIL [Concomitant]
  6. FLOMAX /01280302/ [Concomitant]
     Route: 048
  7. ATORVASTATIN [Concomitant]
     Route: 048

REACTIONS (9)
  - Paranoia [Unknown]
  - Delusion [Unknown]
  - Suicidal ideation [Unknown]
  - Depression [Unknown]
  - Anxiety [Unknown]
  - Panic attack [Unknown]
  - Confusional state [Unknown]
  - Insomnia [Not Recovered/Not Resolved]
  - Drug ineffective [None]
